FAERS Safety Report 6275631-7 (Version None)
Quarter: 2009Q3

REPORT INFORMATION
  Report Type: 
  Country: None (occurrence: None)
  Receive Date: 20090721
  Receipt Date: 20090716
  Transmission Date: 20100115
  Serious: No
  Sender: FDA-Public Use
  Company Number: US-B.I. PHARMACEUTICALS,INC./RIDGEFIELD-2009-BP-08045BP

PATIENT
  Sex: Female

DRUGS (5)
  1. SPIRIVA [Suspect]
     Indication: PULMONARY HYPERTENSION
     Dosage: 18 MCG
     Route: 055
     Dates: start: 20090101
  2. LASIX [Concomitant]
     Indication: CARDIAC FAILURE CONGESTIVE
     Route: 048
  3. SYNTHROID [Concomitant]
     Indication: THYROID DISORDER
     Route: 048
  4. AMBIEN [Concomitant]
     Indication: INSOMNIA
     Route: 048
  5. POTASSIUM CHLORIDE [Concomitant]
     Indication: CARDIAC FAILURE CONGESTIVE
     Route: 048

REACTIONS (3)
  - DRUG INEFFECTIVE [None]
  - DYSPNOEA [None]
  - ORAL PAIN [None]
